FAERS Safety Report 7979524-6 (Version None)
Quarter: 2011Q4

REPORT INFORMATION
  Report Type: 
  Country: None (occurrence: None)
  Receive Date: 20111214
  Receipt Date: 20111209
  Transmission Date: 20120403
  Serious: Yes (Other)
  Sender: FDA-Public Use
  Company Number: PHHY2010CA11252

PATIENT
  Sex: Female

DRUGS (1)
  1. ZOLEDRONOC ACID [Suspect]
     Indication: OSTEOPOROSIS
     Dosage: 5 MG, UNK
     Route: 042
     Dates: start: 20091116

REACTIONS (8)
  - BLOOD PRESSURE INCREASED [None]
  - DRY EYE [None]
  - DENTAL PLAQUE [None]
  - MALAISE [None]
  - HEART RATE INCREASED [None]
  - ARRHYTHMIA [None]
  - HYPERTENSION [None]
  - DRY MOUTH [None]
